FAERS Safety Report 14097319 (Version 1)
Quarter: 2017Q4

REPORT INFORMATION
  Report Type: Spontaneous
  Country: US (occurrence: US)
  Receive Date: 20171016
  Receipt Date: 20171016
  Transmission Date: 20180321
  Serious: Yes (Other)
  Sender: FDA-Public Use
  Company Number: None

PATIENT
  Age: 29 Year
  Sex: Female
  Weight: 90 kg

DRUGS (10)
  1. ZIPRASIDONE. [Concomitant]
     Active Substance: ZIPRASIDONE
  2. VITAMIN D3 [Concomitant]
     Active Substance: CHOLECALCIFEROL
  3. PLEXUS MEGAX [Concomitant]
  4. PLEXUS PROBIO5 [Concomitant]
  5. PLEXUS BIO CLEANSE [Concomitant]
  6. FLUVOXAMINE [Suspect]
     Active Substance: FLUVOXAMINE
     Indication: OBSESSIVE THOUGHTS
     Dosage: ?          QUANTITY:1 TABLET(S);?
     Route: 048
  7. IRON [Concomitant]
     Active Substance: IRON
  8. PLEXUS BLOCK [Concomitant]
  9. PLEXUS X-FACTOR [Concomitant]
  10. PLEXUS VITALBIOME [Concomitant]

REACTIONS (3)
  - Vitreous floaters [None]
  - Photopsia [None]
  - Vitreous detachment [None]

NARRATIVE: CASE EVENT DATE: 20170925
